FAERS Safety Report 22698181 (Version 2)
Quarter: 2023Q4

REPORT INFORMATION
  Report Type: Spontaneous
  Country: US (occurrence: US)
  Receive Date: 20230712
  Receipt Date: 20231218
  Transmission Date: 20240110
  Serious: No
  Sender: FDA-Public Use
  Company Number: US-PFIZER INC-202101134721

PATIENT
  Age: 77 Year
  Sex: Female
  Weight: 48.99 kg

DRUGS (1)
  1. VYNDAMAX [Suspect]
     Active Substance: TAFAMIDIS
     Indication: Amyloidosis
     Dosage: 61 MG, 1X/DAY (61MG 1 CAPSULE BY MOUTH ONCE A DAY)
     Route: 048

REACTIONS (2)
  - Pain in extremity [Unknown]
  - Malaise [Unknown]
